FAERS Safety Report 17834962 (Version 1)
Quarter: 2020Q2

REPORT INFORMATION
  Report Type: Spontaneous
  Country: US (occurrence: US)
  Receive Date: 20200528
  Receipt Date: 20200528
  Transmission Date: 20200714
  Serious: No
  Sender: FDA-Public Use
  Company Number: None

PATIENT
  Sex: Female
  Weight: 63 kg

DRUGS (1)
  1. NP THYROID [Suspect]
     Active Substance: LEVOTHYROXINE\LIOTHYRONINE
     Indication: BLOOD PARATHYROID HORMONE DECREASED
     Dosage: ?          QUANTITY:90 TABLET(S);?
     Route: 048

REACTIONS (11)
  - Trichorrhexis [None]
  - Alopecia [None]
  - Hunger [None]
  - Palpitations [None]
  - Muscular weakness [None]
  - Muscle spasms [None]
  - Weight increased [None]
  - Temperature intolerance [None]
  - Fatigue [None]
  - Recalled product [None]
  - Nervousness [None]
